FAERS Safety Report 4838894-8 (Version None)
Quarter: 2005Q4

REPORT INFORMATION
  Report Type: 
  Country: None (occurrence: None)
  Receive Date: 20051123
  Receipt Date: 20051123
  Transmission Date: 20060501
  Serious: Yes (Life-Threatening)
  Sender: FDA-Public Use
  Company Number: None

PATIENT
  Age: 78 Year
  Sex: Male
  Weight: 70 kg

DRUGS (3)
  1. HEPARIN [Suspect]
     Indication: THROMBOSIS PROPHYLAXIS
  2. HEPARIN [Suspect]
     Indication: ATRIAL FIBRILLATION
  3. ENOXAPARIN SODIUM [Suspect]
     Dosage: 40 MG   Q12H     SQ
     Route: 058

REACTIONS (4)
  - ANAEMIA [None]
  - CARDIAC DISORDER [None]
  - NEOPLASM MALIGNANT [None]
  - THROMBOCYTOPENIA [None]
